FAERS Safety Report 9241950 (Version 3)
Quarter: 2014Q1

REPORT INFORMATION
  Report Type: Report from Study
  Country: GB (occurrence: GB)
  Receive Date: 20130419
  Receipt Date: 20140325
  Transmission Date: 20141002
  Serious: Yes (Hospitalization)
  Sender: FDA-Public Use
  Company Number: GB-ROCHE-1215388

PATIENT
  Age: 81 Year
  Sex: Male

DRUGS (10)
  1. RANIBIZUMAB [Suspect]
     Indication: PRODUCT USED FOR UNKNOWN INDICATION
     Route: 050
     Dates: start: 20111126
  2. RANIBIZUMAB [Suspect]
     Route: 050
     Dates: start: 20120307
  3. RANIBIZUMAB [Suspect]
     Route: 050
     Dates: start: 20130926
  4. NITROLINGUAL SPRAY [Concomitant]
  5. ASPIRIN [Concomitant]
  6. SIMVASTATIN [Concomitant]
  7. BISOPROLOL [Concomitant]
  8. FUROSEMIDE [Concomitant]
  9. RAMIPRIL [Concomitant]
  10. LANSOPRAZOLE [Concomitant]

REACTIONS (2)
  - Peripheral ischaemia [Recovered/Resolved]
  - Peripheral embolism [Recovered/Resolved]
